FAERS Safety Report 6286113-0 (Version None)
Quarter: 2009Q3

REPORT INFORMATION
  Report Type: 
  Country: None (occurrence: None)
  Receive Date: 20090728
  Receipt Date: 20090720
  Transmission Date: 20100115
  Serious: Yes (Other)
  Sender: FDA-Public Use
  Company Number: JP-ROCHE-644822

PATIENT
  Age: 6 Year
  Sex: Male

DRUGS (6)
  1. MYCOPHENOLATE MOFETIL [Suspect]
     Indication: NEPHROTIC SYNDROME
     Route: 065
  2. RITUXIMAB [Suspect]
     Indication: PROTEINURIA
     Route: 042
  3. TACROLIMUS [Suspect]
     Indication: NEPHROTIC SYNDROME
     Route: 065
  4. CYCLOSPORINE [Concomitant]
     Indication: NEPHROTIC SYNDROME
  5. METHYLPREDNISOLONE [Concomitant]
     Indication: NEPHROTIC SYNDROME
     Route: 042
  6. METHYLPREDNISOLONE [Concomitant]
     Route: 042

REACTIONS (6)
  - DISSEMINATED INTRAVASCULAR COAGULATION [None]
  - HERPES ZOSTER [None]
  - PROTEINURIA [None]
  - PYREXIA [None]
  - REVERSIBLE POSTERIOR LEUKOENCEPHALOPATHY SYNDROME [None]
  - WERNICKE'S ENCEPHALOPATHY [None]
